FAERS Safety Report 15074353 (Version 15)
Quarter: 2020Q3

REPORT INFORMATION
  Report Type: Report from Study
  Country: None (occurrence: JP)
  Receive Date: 20180627
  Receipt Date: 20200706
  Transmission Date: 20201102
  Serious: Yes (Hospitalization)
  Sender: FDA-Public Use
  Company Number: JP-ABBVIE-18K-087-2400524-00

PATIENT
  Age: 62 Year
  Sex: Male
  Weight: 50 kg

DRUGS (32)
  1. DUODOPA [Suspect]
     Active Substance: CARBIDOPA\LEVODOPA
     Dosage: MD: 9.1 ML CD: 2.1 ML/HR ? 16 HRS ED: 1 ML/UNIT ? 2 TIMES
     Route: 050
     Dates: start: 20180523, end: 20180617
  2. DUODOPA [Suspect]
     Active Substance: CARBIDOPA\LEVODOPA
     Dosage: MD: 9.0 ML?CD: 1.7 ML/HR ? 16 HRS?ED: 1.1 ML/UNIT ? 3
     Route: 050
     Dates: start: 20190521, end: 20190723
  3. ESOMEPRAZOLE MAGNESIUM HYDRATE [Concomitant]
     Active Substance: ESOMEPRAZOLE MAGNESIUM
     Indication: PRODUCT USED FOR UNKNOWN INDICATION
     Route: 048
  4. DUODOPA [Suspect]
     Active Substance: CARBIDOPA\LEVODOPA
     Dosage: MD: 9.1 ML CD: 1.8 ML/HR ? 16 HRS ED: 0.9 ML/UNIT ? 2 TIMES
     Route: 050
     Dates: start: 20180707, end: 20180806
  5. DUODOPA [Suspect]
     Active Substance: CARBIDOPA\LEVODOPA
     Dosage: MD: 9.0 ML?CD: 1.8 ML/HR ? 16 HRS?ED: 1.1 ML/UNIT ? 2
     Route: 050
     Dates: start: 20190416, end: 20190521
  6. MOSAPRIDE CITRATE HYDRATE [Concomitant]
     Active Substance: MOSAPRIDE CITRATE DIHYDRATE
     Indication: PRODUCT USED FOR UNKNOWN INDICATION
     Route: 048
  7. MAGNESIUM OXIDE. [Concomitant]
     Active Substance: MAGNESIUM OXIDE
     Indication: PRODUCT USED FOR UNKNOWN INDICATION
     Route: 048
  8. DUODOPA [Suspect]
     Active Substance: CARBIDOPA\LEVODOPA
     Dosage: MD: 6.2 ML CD: 2.8 ML/HR ? 16 HRS  ED: 1 ML/UNIT ? 2 TIMES
     Route: 050
     Dates: start: 20180305, end: 20180309
  9. DUODOPA [Suspect]
     Active Substance: CARBIDOPA\LEVODOPA
     Dosage: MD: 9.0 ML?CD: 1.7 ML/HR ? 16 HRS?ED: 1.2 ML/UNIT ? 3
     Route: 050
     Dates: start: 20190723, end: 20190820
  10. DUODOPA [Suspect]
     Active Substance: CARBIDOPA\LEVODOPA
     Dosage: MD: 9.1 ML CD: 2.0 ML/HR ? 16 HRS ED: 0.8 ML/UNIT ? 2 TIMES
     Route: 050
     Dates: start: 20180617, end: 20180624
  11. DUODOPA [Suspect]
     Active Substance: CARBIDOPA\LEVODOPA
     Dosage: MD: 9.0 ML?CD: 1.7 ML/HR ? 16 HRS?ED: 1.3 ML/UNIT ? 3
     Route: 050
     Dates: start: 20190820
  12. ROTIGOTINE [Concomitant]
     Active Substance: ROTIGOTINE
     Indication: PARKINSON^S DISEASE
     Route: 062
  13. HERBAL NOS [Concomitant]
     Active Substance: HERBALS
     Indication: PRODUCT USED FOR UNKNOWN INDICATION
     Route: 048
  14. LUBIPROSTONE [Concomitant]
     Active Substance: LUBIPROSTONE
     Indication: PRODUCT USED FOR UNKNOWN INDICATION
     Route: 048
     Dates: start: 20181021
  15. DENOSUMAB (GENETICAL RECOMBINATION) [Concomitant]
     Active Substance: DENOSUMAB
     Indication: PRODUCT USED FOR UNKNOWN INDICATION
     Route: 058
  16. DUODOPA [Suspect]
     Active Substance: CARBIDOPA\LEVODOPA
     Dosage: MD: 9.0 ML CD: 1.7 ML/HR ? 9 HRS
     Route: 050
     Dates: start: 20180228, end: 20180301
  17. DUODOPA [Suspect]
     Active Substance: CARBIDOPA\LEVODOPA
     Dosage: MD: 9.1 ML CD: 1.8 ML/HR ? 16 HRS ED: 0.7 ML/UNIT ? 2 TIMES
     Route: 050
     Dates: start: 20180630, end: 20180707
  18. ROTIGOTINE [Concomitant]
     Active Substance: ROTIGOTINE
     Route: 062
     Dates: start: 20180302, end: 20180305
  19. ROTIGOTINE [Concomitant]
     Active Substance: ROTIGOTINE
     Route: 062
     Dates: start: 20180313
  20. SENNOSIDES. [Concomitant]
     Active Substance: SENNOSIDES
     Indication: PRODUCT USED FOR UNKNOWN INDICATION
     Route: 048
  21. DUODOPA [Suspect]
     Active Substance: CARBIDOPA\LEVODOPA
     Dosage: MD: 6.0 ML CD: 3.0 ML/HR ? 16 HRS ED: 1 ML/UNIT ? 1 TIME
     Route: 050
     Dates: start: 20180302, end: 20180305
  22. DUODOPA [Suspect]
     Active Substance: CARBIDOPA\LEVODOPA
     Dosage: MD: 9.1 ML CD: 2.0 ML/HR ? 16 HRS ED: 0.6 ML/UNIT ? 2 TIMES
     Route: 050
     Dates: start: 20180624, end: 20180630
  23. DUODOPA [Suspect]
     Active Substance: CARBIDOPA\LEVODOPA
     Dosage: MD: 6.0 ML CD: 2.0 ML/HR ? 16 HRS
     Route: 050
     Dates: start: 20180301, end: 20180302
  24. DUODOPA [Suspect]
     Active Substance: CARBIDOPA\LEVODOPA
     Dosage: MD: 6.2 ML CD: 2.4 ML/HR ? 16 HRS ED: 1 ML/UNIT ? 1 TIME
     Route: 050
     Dates: start: 20180309, end: 20180315
  25. DUODOPA [Suspect]
     Active Substance: CARBIDOPA\LEVODOPA
     Dosage: MD: 9.1 ML CD: 2.2 ML/HR ? 16 HRS
     Route: 050
     Dates: start: 20180326, end: 20180523
  26. DUODOPA [Suspect]
     Active Substance: CARBIDOPA\LEVODOPA
     Dosage: MD: 9.0 ML CD: 2.0 ML/HR ? 16 HRS ED: 1.0 ML/UNIT ? 2 TIMES
     Route: 050
     Dates: start: 20181017, end: 20190416
  27. ROTIGOTINE [Concomitant]
     Active Substance: ROTIGOTINE
     Route: 062
     Dates: start: 20180308, end: 20180312
  28. DUODOPA [Suspect]
     Active Substance: CARBIDOPA\LEVODOPA
     Indication: PRODUCT USED FOR UNKNOWN INDICATION
     Route: 050
     Dates: start: 2017
  29. DUODOPA [Suspect]
     Active Substance: CARBIDOPA\LEVODOPA
     Dosage: MD: 9.1 ML CD: 2.3 ML/HR ? 16 HRS
     Route: 050
     Dates: start: 20180315, end: 20180326
  30. DUODOPA [Suspect]
     Active Substance: CARBIDOPA\LEVODOPA
     Dosage: MD: 9.0 ML CD: 1.9 ML/HR ? 16 HRS ED: 1.0 ML/UNIT ? 2 TIMES
     Route: 050
     Dates: start: 20180806, end: 20181017
  31. ROTIGOTINE [Concomitant]
     Active Substance: ROTIGOTINE
     Route: 062
     Dates: start: 20180306, end: 20180307
  32. CALCIUM CARBONATE W/MAGNESIUM CARBONATE/VITAM [Concomitant]
     Indication: PRODUCT USED FOR UNKNOWN INDICATION
     Route: 048

REACTIONS (15)
  - Device occlusion [Recovered/Resolved]
  - Akinesia [Recovering/Resolving]
  - Posture abnormal [Unknown]
  - Mobility decreased [Unknown]
  - Abdominal pain [Unknown]
  - Stoma site extravasation [Recovering/Resolving]
  - Bradykinesia [Recovered/Resolved]
  - Nausea [Unknown]
  - Dyskinesia [Recovering/Resolving]
  - Anaemia [Recovering/Resolving]
  - Gastrooesophageal reflux disease [Recovered/Resolved]
  - Stoma site reaction [Not Recovered/Not Resolved]
  - Stoma site erythema [Recovering/Resolving]
  - Dyskinesia [Recovered/Resolved]
  - Dyskinesia [Recovered/Resolved]

NARRATIVE: CASE EVENT DATE: 2018
